FAERS Safety Report 4481000-2 (Version None)
Quarter: 2004Q4

REPORT INFORMATION
  Report Type: 
  Country: None (occurrence: None)
  Receive Date: 20041019
  Receipt Date: 20041005
  Transmission Date: 20050328
  Serious: Yes (Other)
  Sender: FDA-Public Use
  Company Number: A0528470A

PATIENT
  Age: 42 Year
  Sex: Female
  Weight: 61.281 kg

DRUGS (6)
  1. NICODERM CQ [Suspect]
     Indication: EX-SMOKER
     Dosage: 21 MG PER DAY TRANSDERMAL
     Route: 062
     Dates: start: 20000101, end: 20000101
  2. NICODERM CQ [Suspect]
     Indication: EX-SMOKER
     Dosage: 7 MG PER DAY TRANSDERMAL
     Route: 062
     Dates: start: 20000101, end: 20010101
  3. SERTRALINE HYDROCHLORIDE [Concomitant]
  4. PRENATAL VITAMINS [Concomitant]
  5. LIBRAX [Concomitant]
  6. CEPHALEXIN [Concomitant]

REACTIONS (7)
  - ABORTION SPONTANEOUS [None]
  - APPLICATION SITE ERYTHEMA [None]
  - APPLICATION SITE PRURITUS [None]
  - COMPLICATION OF PREGNANCY [None]
  - FOETAL DISORDER [None]
  - NIGHTMARE [None]
  - PREGNANCY [None]
